FAERS Safety Report 7535570-8 (Version None)
Quarter: 2011Q2

REPORT INFORMATION
  Report Type: 
  Country: None (occurrence: None)
  Receive Date: 20110609
  Receipt Date: 20110527
  Transmission Date: 20111010
  Serious: Yes (Other)
  Sender: FDA-Public Use
  Company Number: FR-BAYER-2011-046162

PATIENT
  Age: 16 Year
  Sex: Female

DRUGS (1)
  1. ESTRADIOL VALERATE/DIENOGEST [Suspect]
     Indication: PRODUCT USED FOR UNKNOWN INDICATION
     Dosage: UNK
     Route: 048

REACTIONS (3)
  - HEPATITIS [None]
  - VAGINAL HAEMORRHAGE [None]
  - SERUM FERRITIN INCREASED [None]
